FAERS Safety Report 4308912-4 (Version None)
Quarter: 2004Q1

REPORT INFORMATION
  Report Type: 
  Country: None (occurrence: None)
  Receive Date: 20040227
  Receipt Date: 20040109
  Transmission Date: 20041129
  Serious: Yes (Other)
  Sender: FDA-Public Use
  Company Number: EMADSS2003003386

PATIENT
  Age: 47 Year
  Sex: Female

DRUGS (10)
  1. REMICADE [Suspect]
     Indication: RHEUMATOID ARTHRITIS
     Dosage: 260 MG, 1 IN 1 DAY, INTRAVENOUS DRIP
     Route: 041
     Dates: start: 20030110, end: 20030110
  2. REMICADE [Suspect]
     Indication: RHEUMATOID ARTHRITIS
     Dosage: 260 MG, 1 IN 1 DAY, INTRAVENOUS DRIP
     Route: 041
     Dates: start: 20030213, end: 20030213
  3. MELOXICAM (MELOXICAM) [Suspect]
     Indication: RHEUMATOID ARTHRITIS
     Dosage: 15 MG, 1 IN 1 DAY
     Dates: start: 19980201, end: 20030408
  4. DOTHIEPIN HYDROCHLORIDE [Concomitant]
  5. FEMHRT (ANOVLAR) [Concomitant]
  6. LANSOPRAZOLE [Concomitant]
  7. DIHYDROCODEINE (DIHYDROCODEINE) [Concomitant]
  8. METFORMIN HCL [Concomitant]
  9. METHOTREXATE [Concomitant]
  10. CALICHEW (LEKOVIT CA) [Concomitant]

REACTIONS (4)
  - DIABETES MELLITUS [None]
  - HEPATIC NECROSIS [None]
  - HEPATIC STEATOSIS [None]
  - HEPATITIS [None]
